FAERS Safety Report 11814307 (Version 3)
Quarter: 2016Q1

REPORT INFORMATION
  Report Type: Spontaneous
  Country: US (occurrence: US)
  Receive Date: 20151209
  Receipt Date: 20160314
  Transmission Date: 20160525
  Serious: No
  Sender: FDA-Public Use
  Company Number: US-009507513-1511USA013231

PATIENT
  Age: 28 Year
  Sex: Female
  Weight: 88.44 kg

DRUGS (2)
  1. IMPLANON [Suspect]
     Active Substance: ETONOGESTREL
     Dosage: ONE UNIT/ ONCE PER THREE YEARS (ANOTHER ONE PLACED)
     Route: 059
  2. IMPLANON [Suspect]
     Active Substance: ETONOGESTREL
     Indication: CONTRACEPTION
     Dosage: ONE UNIT/ ONCE PER THREE YEARS
     Route: 059
     Dates: start: 20120726

REACTIONS (7)
  - Menstruation irregular [Not Recovered/Not Resolved]
  - Complication associated with device [Recovered/Resolved]
  - Alopecia [Not Recovered/Not Resolved]
  - Device difficult to use [Not Recovered/Not Resolved]
  - Incorrect drug administration duration [Unknown]
  - Overdose [Unknown]
  - Weight increased [Not Recovered/Not Resolved]

NARRATIVE: CASE EVENT DATE: 201507
